FAERS Safety Report 4476036-1 (Version None)
Quarter: 2004Q4

REPORT INFORMATION
  Report Type: 
  Country: None (occurrence: None)
  Receive Date: 20041012
  Receipt Date: 20040929
  Transmission Date: 20050328
  Serious: Yes (Other)
  Sender: FDA-Public Use
  Company Number: 2004071913

PATIENT
  Age: 40 Year
  Sex: Female
  Weight: 48.5349 kg

DRUGS (7)
  1. RELPAX [Suspect]
     Indication: MIGRAINE WITHOUT AURA
     Dosage: 20 MG (20 MG, 1 IN 1 D), ORAL
     Route: 048
     Dates: start: 20040921, end: 20040921
  2. SUMATRIPTAN SUCCINATE [Concomitant]
  3. TESTOSTERONE [Concomitant]
  4. SOMATROPIN (SOMATROPIN) [Concomitant]
  5. THYROID TAB [Concomitant]
  6. PRASTERONE (PRASTERONE) [Concomitant]
  7. BUPROPION HYDROCHLORIDE [Concomitant]

REACTIONS (7)
  - CATATONIA [None]
  - EMOTIONAL DISORDER [None]
  - MIGRAINE [None]
  - MOVEMENT DISORDER [None]
  - NAUSEA [None]
  - SPEECH DISORDER [None]
  - VOMITING [None]
